FAERS Safety Report 4527689-0 (Version None)
Quarter: 2004Q4

REPORT INFORMATION
  Report Type: 
  Country: None (occurrence: None)
  Receive Date: 20041215
  Receipt Date: 20041013
  Transmission Date: 20050328
  Serious: Yes (Other)
  Sender: FDA-Public Use
  Company Number: US-MERCK-0410USA02164

PATIENT
  Age: 66 Year
  Sex: Female

DRUGS (5)
  1. VIOXX [Suspect]
     Indication: OSTEOARTHRITIS
     Route: 048
     Dates: start: 20010101, end: 20030701
  2. VIOXX [Suspect]
     Route: 048
     Dates: end: 20040101
  3. EFFEXOR [Concomitant]
     Indication: DEPRESSION
     Route: 048
  4. XANAX [Concomitant]
     Indication: ANXIETY
     Route: 048
  5. ESTRATEST [Concomitant]
     Indication: HORMONE REPLACEMENT THERAPY
     Route: 048

REACTIONS (4)
  - BLOOD PRESSURE INCREASED [None]
  - DIVERTICULUM [None]
  - HAEMORRHAGE [None]
  - OSTEOARTHRITIS [None]
